FAERS Safety Report 9181705 (Version 1)
Quarter: 2013Q1

REPORT INFORMATION
  Report Type: Spontaneous
  Country: US (occurrence: US)
  Receive Date: 20130322
  Receipt Date: 20130322
  Transmission Date: 20140127
  Serious: Yes (Other)
  Sender: FDA-Public Use
  Company Number: US-BAYER-2013-033749

PATIENT
  Age: 18 Year
  Sex: Female

DRUGS (4)
  1. YAZ [Suspect]
  2. YASMIN [Suspect]
  3. PENICILLIN V POTASSIUM [Concomitant]
     Dosage: 500 MG, UNK
  4. DEXAMETHASONE [Concomitant]
     Dosage: 4 MG, UNK

REACTIONS (1)
  - Thrombophlebitis superficial [Recovered/Resolved]
